FAERS Safety Report 7250601-0 (Version None)
Quarter: 2011Q1

REPORT INFORMATION
  Report Type: 
  Country: None (occurrence: None)
  Receive Date: 20110128
  Receipt Date: 20110117
  Transmission Date: 20110831
  Serious: Yes (Other)
  Sender: FDA-Public Use
  Company Number: PHHY2011JP04988

PATIENT
  Age: 37 Year
  Sex: Female

DRUGS (3)
  1. OXYCODONE HCL [Concomitant]
  2. PROCHLORPERAZINE [Suspect]
     Dosage: 10 MG, QD
  3. PROCHLORPERAZINE [Suspect]
     Dosage: 5 MG, QD

REACTIONS (7)
  - AKATHISIA [None]
  - ANXIETY [None]
  - MAJOR DEPRESSION [None]
  - DECREASED APPETITE [None]
  - PARKINSONISM [None]
  - INSOMNIA [None]
  - SUICIDAL IDEATION [None]
